FAERS Safety Report 15553678 (Version 3)
Quarter: 2019Q3

REPORT INFORMATION
  Report Type: Spontaneous
  Country: US (occurrence: US)
  Receive Date: 20181026
  Receipt Date: 20190806
  Transmission Date: 20191004
  Serious: Yes (Other)
  Sender: FDA-Public Use
  Company Number: US-ASTRAZENECA-2018SF39431

PATIENT
  Age: 72 Year
  Sex: Male
  Weight: 82.6 kg

DRUGS (42)
  1. NEXIUM [Suspect]
     Active Substance: ESOMEPRAZOLE MAGNESIUM
     Indication: GASTROOESOPHAGEAL REFLUX DISEASE
     Route: 048
     Dates: start: 2008, end: 2011
  2. DETROL LA [Concomitant]
     Active Substance: TOLTERODINE TARTRATE
     Dates: start: 200610, end: 200802
  3. LIPITOR [Concomitant]
     Active Substance: ATORVASTATIN CALCIUM
     Indication: BLOOD CHOLESTEROL
     Dates: start: 200608, end: 201606
  4. DIOVAN [Concomitant]
     Active Substance: VALSARTAN
     Indication: BLOOD PRESSURE MEASUREMENT
     Dates: start: 200711, end: 201009
  5. TERAZOSIN [Concomitant]
     Active Substance: TERAZOSIN HYDROCHLORIDE
  6. IBUPROFEN. [Concomitant]
     Active Substance: IBUPROFEN
  7. TAMSULOSIN [Concomitant]
     Active Substance: TAMSULOSIN
  8. MOBIC [Concomitant]
     Active Substance: MELOXICAM
  9. AVODART [Concomitant]
     Active Substance: DUTASTERIDE
     Indication: URINARY RETENTION
     Dates: start: 200609, end: 201503
  10. PREDNISOLONE. [Concomitant]
     Active Substance: PREDNISOLONE
  11. AMLODIPINE [Concomitant]
     Active Substance: AMLODIPINE BESYLATE
     Indication: BLOOD PRESSURE MEASUREMENT
     Dates: start: 200807, end: 201606
  12. PEPCID [Concomitant]
     Active Substance: FAMOTIDINE
  13. LOSARTAN. [Concomitant]
     Active Substance: LOSARTAN
  14. FLOMAX [Concomitant]
     Active Substance: TAMSULOSIN HYDROCHLORIDE
  15. CATAPRES [Concomitant]
     Active Substance: CLONIDINE HYDROCHLORIDE
     Indication: BLOOD PRESSURE MEASUREMENT
     Dates: start: 200802, end: 200806
  16. VITAMIN D [Concomitant]
     Active Substance: VITAMIN D NOS
  17. LEVAQUIN [Concomitant]
     Active Substance: LEVOFLOXACIN
  18. METFORMIN [Concomitant]
     Active Substance: METFORMIN HYDROCHLORIDE
  19. HYDROCHLOROTHIAZIDE. [Concomitant]
     Active Substance: HYDROCHLOROTHIAZIDE
  20. ATORVASTATIN [Concomitant]
     Active Substance: ATORVASTATIN
  21. VENTOLIN [Concomitant]
     Active Substance: ALBUTEROL SULFATE
  22. PANTOPRAZOLE [Suspect]
     Active Substance: PANTOPRAZOLE
     Indication: GASTROOESOPHAGEAL REFLUX DISEASE
     Dosage: GENERIC
     Route: 065
     Dates: start: 2016, end: 2018
  23. VIAGRA [Concomitant]
     Active Substance: SILDENAFIL CITRATE
     Indication: ERECTILE DYSFUNCTION
     Dates: start: 200606, end: 200802
  24. METHYLPREDNISOLONE. [Concomitant]
     Active Substance: METHYLPREDNISOLONE
     Dates: start: 200711, end: 201203
  25. VITAMIN A [Concomitant]
     Active Substance: VITAMIN A
  26. NAPRELAN [Concomitant]
     Active Substance: NAPROXEN SODIUM
  27. OMEPRAZOLE. [Suspect]
     Active Substance: OMEPRAZOLE
     Indication: GASTROOESOPHAGEAL REFLUX DISEASE
     Dosage: GENERIC
     Route: 048
     Dates: start: 20160523
  28. ACIPHEX [Suspect]
     Active Substance: RABEPRAZOLE SODIUM
     Indication: GASTROOESOPHAGEAL REFLUX DISEASE
     Route: 065
     Dates: start: 2006, end: 2008
  29. ATENOLOL. [Concomitant]
     Active Substance: ATENOLOL
  30. ALPHAGAN P [Concomitant]
     Active Substance: BRIMONIDINE TARTRATE
  31. SIMVASTATIN. [Concomitant]
     Active Substance: SIMVASTATIN
  32. XANAX [Concomitant]
     Active Substance: ALPRAZOLAM
  33. ZOCOR [Concomitant]
     Active Substance: SIMVASTATIN
  34. NEXIUM [Suspect]
     Active Substance: ESOMEPRAZOLE MAGNESIUM
     Indication: GASTROOESOPHAGEAL REFLUX DISEASE
     Route: 048
     Dates: start: 2007, end: 2008
  35. OMEPRAZOLE. [Suspect]
     Active Substance: OMEPRAZOLE
     Indication: GASTROOESOPHAGEAL REFLUX DISEASE
     Dosage: GENERIC
     Route: 065
     Dates: start: 2010, end: 2016
  36. VITAMIN B12 [Concomitant]
     Active Substance: CYANOCOBALAMIN
  37. TERBINAFINE. [Concomitant]
     Active Substance: TERBINAFINE
  38. COZAAR [Concomitant]
     Active Substance: LOSARTAN POTASSIUM
  39. FLUTICASONE. [Concomitant]
     Active Substance: FLUTICASONE
     Dates: start: 200612, end: 201412
  40. PROVENTIL [Concomitant]
     Active Substance: ALBUTEROL
     Dates: start: 200802, end: 201003
  41. FAMOTIDINE. [Concomitant]
     Active Substance: FAMOTIDINE
  42. METOPROLOL. [Concomitant]
     Active Substance: METOPROLOL

REACTIONS (4)
  - Renal failure [Unknown]
  - Chronic kidney disease [Not Recovered/Not Resolved]
  - Acute kidney injury [Not Recovered/Not Resolved]
  - Nephrogenic anaemia [Unknown]

NARRATIVE: CASE EVENT DATE: 2012
